FAERS Safety Report 14977042 (Version 2)
Quarter: 2018Q2

REPORT INFORMATION
  Report Type: Report from Study
  Country: None (occurrence: SE)
  Receive Date: 20180606
  Receipt Date: 20180615
  Transmission Date: 20180711
  Serious: Yes (Death, Other)
  Sender: FDA-Public Use
  Company Number: SE-ABBVIE-18K-150-2374447-00

PATIENT
  Age: 86 Year
  Sex: Female
  Weight: 44 kg

DRUGS (6)
  1. VITAMIN B12 [Concomitant]
     Active Substance: CYANOCOBALAMIN
     Indication: PRODUCT USED FOR UNKNOWN INDICATION
  2. DUODOPA [Suspect]
     Active Substance: CARBIDOPA\LEVODOPA
     Route: 050
     Dates: start: 20100121
  3. OVESTERIN [Concomitant]
     Active Substance: ESTRIOL
     Indication: MUCOSAL DRYNESS
     Route: 067
  4. MADOPAR DEPOT [Concomitant]
     Active Substance: BENSERAZIDE HYDROCHLORIDE\LEVODOPA
     Indication: PRODUCT USED FOR UNKNOWN INDICATION
     Dosage: AT NIGHT
  5. DUODOPA [Suspect]
     Active Substance: CARBIDOPA\LEVODOPA
     Indication: PARKINSON^S DISEASE
     Route: 050
     Dates: start: 20100101, end: 201001
  6. IMOVANE [Concomitant]
     Active Substance: ZOPICLONE
     Indication: PRODUCT USED FOR UNKNOWN INDICATION

REACTIONS (7)
  - Loss of consciousness [Fatal]
  - General physical health deterioration [Fatal]
  - Red blood cell sedimentation rate increased [Fatal]
  - Dysphagia [Unknown]
  - Pneumonia aspiration [Fatal]
  - Parkinson^s disease [Fatal]
  - Product quality issue [Unknown]

NARRATIVE: CASE EVENT DATE: 2017
